FAERS Safety Report 9369909 (Version 2)
Quarter: 2013Q3

REPORT INFORMATION
  Report Type: Spontaneous
  Country: FR (occurrence: FR)
  Receive Date: 20130626
  Receipt Date: 20130722
  Transmission Date: 20140515
  Serious: Yes (Other)
  Sender: FDA-Public Use
  Company Number: FR-MERCK-1306FRA008084

PATIENT
  Age: 55 Year
  Sex: Female

DRUGS (3)
  1. NOXAFIL [Suspect]
     Indication: BRONCHOPULMONARY ASPERGILLOSIS
     Dosage: 200 MG, TID
     Route: 048
     Dates: end: 201212
  2. NOXAFIL [Suspect]
     Dosage: 400 MG, BID
     Route: 048
     Dates: start: 201212, end: 201303
  3. NOXAFIL [Suspect]
     Dosage: 200 MG, TID
     Route: 048
     Dates: start: 201303

REACTIONS (2)
  - Peripheral sensory neuropathy [Not Recovered/Not Resolved]
  - Neuralgia [Not Recovered/Not Resolved]
